FAERS Safety Report 7744531-5 (Version None)
Quarter: 2011Q3

REPORT INFORMATION
  Report Type: 
  Country: None (occurrence: None)
  Receive Date: 20110912
  Receipt Date: 20110906
  Transmission Date: 20111222
  Serious: Yes (Other)
  Sender: FDA-Public Use
  Company Number: FR-ABBOTT-11P-056-0849706-00

PATIENT
  Sex: Female
  Weight: 57 kg

DRUGS (3)
  1. METHOTREXATE [Suspect]
     Route: 048
     Dates: end: 20090101
  2. METHOTREXATE [Suspect]
     Indication: RHEUMATOID ARTHRITIS
     Route: 048
     Dates: start: 20030101
  3. HUMIRA [Suspect]
     Indication: RHEUMATOID ARTHRITIS
     Dates: start: 20050501, end: 20110801

REACTIONS (2)
  - BLADDER CANCER [None]
  - URINARY BLADDER POLYP [None]
